FAERS Safety Report 6609234-9 (Version None)
Quarter: 2010Q1

REPORT INFORMATION
  Report Type: 
  Country: None (occurrence: None)
  Receive Date: 20100222
  Receipt Date: 20100210
  Transmission Date: 20100710
  Serious: Yes (Death, Hospitalization)
  Sender: FDA-Public Use
  Company Number: 2009AC000405

PATIENT
  Age: 81 Year
  Sex: Female

DRUGS (32)
  1. DIGOXIN [Suspect]
     Dosage: 0.25 MG; QD; PO
     Route: 048
     Dates: start: 20080320, end: 20080412
  2. DIGOXIN [Suspect]
     Dosage: 0.125 MG; QD; PO
     Route: 048
     Dates: start: 20080316
  3. ZETIA [Concomitant]
  4. WELCHOL [Concomitant]
  5. FLEXERIL [Concomitant]
  6. MACROBID [Concomitant]
  7. DIOVAN [Concomitant]
  8. ISMO [Concomitant]
  9. LOPRESSOR [Concomitant]
  10. NORVASC [Concomitant]
  11. LEVAQUIN [Concomitant]
  12. PRAVACHOL [Concomitant]
  13. LASIX [Concomitant]
  14. KAY CIEL DURA-TABS [Concomitant]
  15. PHENERGAN HCL [Concomitant]
  16. NITROFURANTOIN [Concomitant]
  17. AMLODIPINE [Concomitant]
  18. ISOSORBIDE [Concomitant]
  19. KLOR-CON [Concomitant]
  20. PRAVASTATIN [Concomitant]
  21. CYCLIBENZAPRINE [Concomitant]
  22. POTASSIUM CHLORIDE [Concomitant]
  23. ASPIRIN [Concomitant]
  24. PREVACID [Concomitant]
  25. REGLAN [Concomitant]
  26. TOPROL-XL [Concomitant]
  27. WARFARIN SODIUM [Concomitant]
  28. CHLORDIAZEPOXIDE [Concomitant]
  29. ALTACE [Concomitant]
  30. METOPROLOL TARTRATE [Concomitant]
  31. LIPITOR [Concomitant]
  32. COUMADIN [Concomitant]

REACTIONS (42)
  - ABDOMINAL DISTENSION [None]
  - ABDOMINAL PAIN [None]
  - ACUTE MYOCARDIAL INFARCTION [None]
  - ALTERED STATE OF CONSCIOUSNESS [None]
  - ATRIAL FIBRILLATION [None]
  - CARDIAC VALVE DISEASE [None]
  - CARDIOACTIVE DRUG LEVEL DECREASED [None]
  - CEREBROVASCULAR ACCIDENT [None]
  - COMPUTERISED TOMOGRAM ABNORMAL [None]
  - CONDITION AGGRAVATED [None]
  - CONFUSIONAL STATE [None]
  - CORONARY ARTERY DISEASE [None]
  - CULTURE URINE POSITIVE [None]
  - DECREASED APPETITE [None]
  - DEHYDRATION [None]
  - DEMENTIA [None]
  - DYSURIA [None]
  - ECONOMIC PROBLEM [None]
  - ESCHERICHIA INFECTION [None]
  - FALL [None]
  - GASTROOESOPHAGEAL REFLUX DISEASE [None]
  - HIATUS HERNIA [None]
  - HYPERLIPIDAEMIA [None]
  - HYPERTENSION [None]
  - HYPOPHAGIA [None]
  - INTERNATIONAL NORMALISED RATIO INCREASED [None]
  - MALAISE [None]
  - MULTIPLE INJURIES [None]
  - MYOCARDIAL INFARCTION [None]
  - NAUSEA [None]
  - OSTEOARTHRITIS [None]
  - OSTEOPOROSIS [None]
  - PARANOIA [None]
  - POLYCYTHAEMIA [None]
  - RENAL ARTERY STENOSIS [None]
  - RENAL FAILURE ACUTE [None]
  - RENAL FAILURE CHRONIC [None]
  - SLEEP ATTACKS [None]
  - SURGERY [None]
  - THYROID DISORDER [None]
  - TROPONIN INCREASED [None]
  - VOMITING [None]
